FAERS Safety Report 6461774-1 (Version None)
Quarter: 2009Q4

REPORT INFORMATION
  Report Type: 
  Country: None (occurrence: None)
  Receive Date: 20091130
  Receipt Date: 20091117
  Transmission Date: 20100525
  Serious: Yes (Other)
  Sender: FDA-Public Use
  Company Number: PHEH2008US06303

PATIENT
  Sex: Female
  Weight: 53.515 kg

DRUGS (5)
  1. COMBIPATCH [Suspect]
     Dosage: 50/250 / EVERY 4 DAYS
     Route: 062
     Dates: start: 19970101, end: 20030101
  2. WELLBUTRIN SR [Concomitant]
     Dosage: 150 MG / DAILY
     Route: 048
  3. MULTI-VITAMINS [Concomitant]
     Dosage: UNK
  4. VITAMIN E [Concomitant]
     Dosage: UNK
  5. ZOLOFT [Concomitant]
     Dosage: UNK

REACTIONS (17)
  - BIOPSY BREAST [None]
  - BREAST CALCIFICATIONS [None]
  - BREAST CANCER STAGE II [None]
  - BREAST MASS [None]
  - BREAST OEDEMA [None]
  - BREAST PROSTHESIS IMPLANTATION [None]
  - BREAST RECONSTRUCTION [None]
  - HOT FLUSH [None]
  - INSOMNIA [None]
  - LIBIDO DECREASED [None]
  - MALIGNANT BREAST LUMP REMOVAL [None]
  - MAMMOGRAM ABNORMAL [None]
  - MASTECTOMY [None]
  - MOLE EXCISION [None]
  - NIGHT SWEATS [None]
  - NOCTURIA [None]
  - ULTRASOUND SCAN ABNORMAL [None]
